FAERS Safety Report 4267219-4 (Version None)
Quarter: 2004Q1

REPORT INFORMATION
  Report Type: 
  Country: None (occurrence: None)
  Receive Date: 20040107
  Receipt Date: 20031224
  Transmission Date: 20041129
  Serious: Yes (Hospitalization)
  Sender: FDA-Public Use
  Company Number: 2003EU007369

PATIENT
  Age: 16 Year
  Sex: Female
  Weight: 55 kg

DRUGS (7)
  1. PROGRAF [Suspect]
     Indication: RENAL TRANSPLANT
     Dosage: D
  2. CETIRIZINE (CETIRIZINE) UNKNOWN [Suspect]
     Dosage: 7.5 MG, PRN, ORAL
     Route: 048
     Dates: start: 20030617
  3. BASILIXIMAB (BASILIXIMAB) [Concomitant]
  4. AZATHIOPRINE [Concomitant]
  5. PREDNISOLONE [Concomitant]
  6. CO-TRIMOXAZOLE (TRIMETHOPRIM, SULFAMETHOXAZOLE) [Concomitant]
  7. AMLODIPINE [Concomitant]

REACTIONS (4)
  - BLOOD CREATININE INCREASED [None]
  - DRUG INTERACTION [None]
  - DRUG LEVEL INCREASED [None]
  - NEPHROPATHY TOXIC [None]
